FAERS Safety Report 7049536-8 (Version None)
Quarter: 2010Q4

REPORT INFORMATION
  Report Type: 
  Country: None (occurrence: None)
  Receive Date: 20101018
  Receipt Date: 20101006
  Transmission Date: 20110411
  Serious: Yes (Other)
  Sender: FDA-Public Use
  Company Number: JP-PFIZER INC-2010126291

PATIENT
  Age: 75 Year
  Sex: Female

DRUGS (1)
  1. LYRICA [Suspect]
     Indication: POST HERPETIC NEURALGIA
     Dosage: 75 MG, 2X/DAY
     Route: 048
     Dates: start: 20100625, end: 20101004

REACTIONS (5)
  - CARDIAC HYPERTROPHY [None]
  - COUGH [None]
  - FATIGUE [None]
  - RHINORRHOEA [None]
  - SOMNOLENCE [None]
